FAERS Safety Report 12201530 (Version 1)
Quarter: 2016Q1

REPORT INFORMATION
  Report Type: Spontaneous
  Country: US (occurrence: US)
  Receive Date: 20160322
  Receipt Date: 20160322
  Transmission Date: 20160526
  Serious: No
  Sender: FDA-Public Use
  Company Number: US-SA-2015SA168114

PATIENT
  Age: 77 Year
  Sex: Female

DRUGS (1)
  1. NASACORT ALLERGY 24HR [Suspect]
     Active Substance: TRIAMCINOLONE ACETONIDE
     Indication: SINUS POLYP
     Dosage: DAILY DOSAGE: 2 SPRAYS DAILY
     Route: 065

REACTIONS (2)
  - Anosmia [Unknown]
  - Ageusia [Unknown]
